FAERS Safety Report 17308428 (Version 1)
Quarter: 2020Q1

REPORT INFORMATION
  Report Type: Spontaneous
  Country: GB (occurrence: GB)
  Receive Date: 20200123
  Receipt Date: 20200123
  Transmission Date: 20200409
  Serious: Yes (Hospitalization)
  Sender: FDA-Public Use
  Company Number: GB-TEVA-2020-GB-1171874

PATIENT
  Age: 68 Year
  Sex: Female
  Weight: 66 kg

DRUGS (14)
  1. CYCLOPHOSPHAMIDE. [Suspect]
     Active Substance: CYCLOPHOSPHAMIDE
     Dates: start: 20191206
  2. CO-AMOXICLAV [Concomitant]
     Active Substance: AMOXICILLIN\CLAVULANATE POTASSIUM
  3. TAZOCIN [Concomitant]
     Active Substance: PIPERACILLIN SODIUM\TAZOBACTAM SODIUM
  4. VINCRISTINE [Suspect]
     Active Substance: VINCRISTINE
     Dates: start: 20191206
  5. PREDNISOLONE. [Suspect]
     Active Substance: PREDNISOLONE
     Dosage: 70 MG
     Route: 042
     Dates: start: 20191206
  6. FILGRASTIM [Concomitant]
     Active Substance: FILGRASTIM
  7. ADCAL [Concomitant]
  8. DALTEPARIN [Concomitant]
     Active Substance: DALTEPARIN
  9. PARACETAMOL [Concomitant]
     Active Substance: ACETAMINOPHEN
  10. RITUXIMAB. [Suspect]
     Active Substance: RITUXIMAB
     Dates: start: 20191206
  11. SIMVASTATIN. [Concomitant]
     Active Substance: SIMVASTATIN
  12. DOXORUBICIN [Suspect]
     Active Substance: DOXORUBICIN
     Dates: start: 20191206
  13. RANITIDINE. [Concomitant]
     Active Substance: RANITIDINE
  14. ACICLOVIR [Concomitant]
     Active Substance: ACYCLOVIR

REACTIONS (1)
  - Febrile neutropenia [Recovered/Resolved]

NARRATIVE: CASE EVENT DATE: 20191216
